FAERS Safety Report 9106912 (Version 2)
Quarter: 2013Q1

REPORT INFORMATION
  Report Type: Report from Study
  Country: US (occurrence: US)
  Receive Date: 20130221
  Receipt Date: 20130302
  Transmission Date: 20140127
  Serious: Yes (Hospitalization)
  Sender: FDA-Public Use
  Company Number: US-US-EMD SERONO, INC.-7194154

PATIENT
  Sex: Male

DRUGS (4)
  1. REBIF [Suspect]
     Indication: RELAPSING-REMITTING MULTIPLE SCLEROSIS
     Route: 058
     Dates: start: 20120611, end: 20121226
  2. REBIF [Suspect]
     Route: 058
     Dates: start: 20130128, end: 20130211
  3. REBIF [Suspect]
     Route: 058
     Dates: start: 20130211
  4. BACLOFEN [Concomitant]
     Indication: PRODUCT USED FOR UNKNOWN INDICATION

REACTIONS (8)
  - Cholelithiasis [Unknown]
  - Blood pressure decreased [Unknown]
  - Heart rate increased [Unknown]
  - Body temperature increased [Unknown]
  - Faeces discoloured [Unknown]
  - Abdominal discomfort [Unknown]
  - Muscle spasms [Unknown]
  - Liver function test abnormal [Not Recovered/Not Resolved]
